FAERS Safety Report 6735084-9 (Version None)
Quarter: 2010Q2

REPORT INFORMATION
  Report Type: 
  Country: None (occurrence: None)
  Receive Date: 20100518
  Receipt Date: 20100518
  Transmission Date: 20101027
  Serious: Yes (Other)
  Sender: FDA-Public Use
  Company Number: None

PATIENT
  Age: 52 Year
  Sex: Male

DRUGS (1)
  1. SERTRALINE HCL [Suspect]
     Dosage: 100 MG 2 TABS QD
     Dates: start: 20100509

REACTIONS (2)
  - ADVERSE EVENT [None]
  - PRODUCT SUBSTITUTION ISSUE [None]
